FAERS Safety Report 24362742 (Version 1)
Quarter: 2024Q3

REPORT INFORMATION
  Report Type: Spontaneous
  Country: US (occurrence: US)
  Receive Date: 20240925
  Receipt Date: 20240925
  Transmission Date: 20241017
  Serious: Yes (Life-Threatening, Hospitalization, Other)
  Sender: PFIZER
  Company Number: US-PFIZER INC-PV202400123381

PATIENT
  Age: 76 Year
  Sex: Male
  Weight: 81 kg

DRUGS (6)
  1. SULFAMETHOXAZOLE\TRIMETHOPRIM [Suspect]
     Active Substance: SULFAMETHOXAZOLE\TRIMETHOPRIM
     Indication: Pneumocystis jirovecii pneumonia
     Dosage: 5 MG/KG/DOSE EVERY TWELVE HOURS (TWO DOUBLE-STRENGTH TABLETS PO TWICE DAILY)
     Route: 048
  2. SULFAMETHOXAZOLE\TRIMETHOPRIM [Suspect]
     Active Substance: SULFAMETHOXAZOLE\TRIMETHOPRIM
     Dosage: 5 MG/KG VIA TUBE (VT) EVERY TWELVE HOURS
  3. PRIMAQUINE [Concomitant]
     Active Substance: PRIMAQUINE
     Indication: Pneumocystis jirovecii pneumonia
     Dosage: 30 MG, DAILY
     Route: 048
  4. CLINDAMYCIN [Concomitant]
     Active Substance: CLINDAMYCIN
     Indication: Pneumocystis jirovecii pneumonia
     Dosage: 900 MG, 3X/DAY
     Route: 042
  5. METHYLENE BLUE [Concomitant]
     Active Substance: METHYLENE BLUE
     Indication: Methaemoglobinaemia
     Dosage: 1.5 MG/KG, SINGLE DOSE
     Route: 042
  6. VITAMIN C [Concomitant]
     Active Substance: ASCORBIC ACID
     Indication: Methaemoglobinaemia
     Dosage: 1.5 G, 4X/DAY FOR SIX DOSES
     Route: 042

REACTIONS (4)
  - Nephropathy toxic [Unknown]
  - Acute kidney injury [Unknown]
  - Condition aggravated [Unknown]
  - Hyperkalaemia [Unknown]
